FAERS Safety Report 9144722 (Version 1)
Quarter: 2013Q1

REPORT INFORMATION
  Report Type: Spontaneous
  Country: IT (occurrence: IT)
  Receive Date: 20130306
  Receipt Date: 20130306
  Transmission Date: 20140127
  Serious: Yes (Death)
  Sender: FDA-Public Use
  Company Number: IT-ELI_LILLY_AND_COMPANY-IT201302009303

PATIENT
  Age: 73 Year
  Sex: Male

DRUGS (8)
  1. EFIENT [Suspect]
     Indication: ACUTE MYOCARDIAL INFARCTION
     Dosage: UNK UNK, QD
     Route: 048
     Dates: start: 20120411
  2. EFIENT [Suspect]
     Dosage: 10 MG, QD
     Route: 048
     Dates: start: 20120413
  3. FUROSEMIDE [Concomitant]
     Indication: CONGESTIVE CARDIOMYOPATHY
     Dosage: 25 MG, UNK
     Dates: start: 20000101
  4. BISOPROLOLO [Concomitant]
     Indication: ACUTE CORONARY SYNDROME
     Dosage: 375 MG, UNK
     Dates: start: 20120417
  5. AMLODIPINA                         /00972401/ [Concomitant]
     Dosage: 5 MG, UNK
     Dates: start: 20120412
  6. RAMIPRIL [Concomitant]
     Indication: CONGESTIVE CARDIOMYOPATHY
     Dosage: 5 MG, UNK
     Dates: start: 20120419
  7. ATORVASTATINA [Concomitant]
     Indication: ACUTE CORONARY SYNDROME
     Dosage: 60 MG, UNK
     Dates: start: 20000101
  8. ASPIRINA [Concomitant]
     Indication: ACUTE CORONARY SYNDROME
     Dosage: 100 MG, UNK
     Dates: start: 20000101

REACTIONS (1)
  - Sudden death [Fatal]
